FAERS Safety Report 6964079-5 (Version None)
Quarter: 2010Q3

REPORT INFORMATION
  Report Type: 
  Country: None (occurrence: None)
  Receive Date: 20100902
  Receipt Date: 20100820
  Transmission Date: 20110219
  Serious: Yes (Other)
  Sender: FDA-Public Use
  Company Number: GB-MYLANLABS-2010S1015151

PATIENT
  Age: 74 Year
  Sex: Female

DRUGS (12)
  1. GABAPENTIN [Suspect]
     Indication: NEURALGIA
     Route: 048
     Dates: start: 20100422, end: 20100423
  2. GABAPENTIN [Suspect]
     Indication: BACK PAIN
     Route: 048
     Dates: start: 20100422, end: 20100423
  3. GABAPENTIN [Suspect]
     Route: 048
     Dates: start: 20100416, end: 20100421
  4. GABAPENTIN [Suspect]
     Route: 048
     Dates: start: 20100416, end: 20100421
  5. GABAPENTIN [Suspect]
     Route: 048
     Dates: start: 20100410, end: 20100415
  6. GABAPENTIN [Suspect]
     Route: 048
     Dates: start: 20100410, end: 20100415
  7. GABAPENTIN [Suspect]
     Route: 048
     Dates: start: 20100406, end: 20100409
  8. GABAPENTIN [Suspect]
     Route: 048
     Dates: start: 20100406, end: 20100409
  9. GABAPENTIN [Suspect]
     Route: 048
     Dates: start: 20100403, end: 20100405
  10. GABAPENTIN [Suspect]
     Route: 048
     Dates: start: 20100403, end: 20100405
  11. GABAPENTIN [Suspect]
     Route: 048
     Dates: start: 20100329, end: 20100330
  12. GABAPENTIN [Suspect]
     Route: 048
     Dates: start: 20100329, end: 20100330

REACTIONS (7)
  - ASTHENIA [None]
  - BACK PAIN [None]
  - JOINT SWELLING [None]
  - ORAL DISORDER [None]
  - PAIN [None]
  - RASH [None]
  - WEIGHT INCREASED [None]
